FAERS Safety Report 4507267-X (Version None)
Quarter: 2004Q4

REPORT INFORMATION
  Report Type: 
  Country: None (occurrence: None)
  Receive Date: 20041025
  Receipt Date: 20040524
  Transmission Date: 20050328
  Serious: Yes (Other)
  Sender: FDA-Public Use
  Company Number: US-JNJFOC-20040505894

PATIENT
  Age: 63 Year
  Sex: Female

DRUGS (12)
  1. REMICADE [Suspect]
     Indication: RHEUMATOID ARTHRITIS
     Dosage: 1 IN 8 WEEK, INTRAVENOUS
     Route: 042
     Dates: start: 20010101
  2. REMICADE [Suspect]
     Indication: RHEUMATOID ARTHRITIS
     Dosage: 1 IN 8 WEEK, INTRAVENOUS
     Route: 042
     Dates: start: 20040506
  3. BEXTRA [Concomitant]
  4. PAXIL [Concomitant]
  5. METHOTREXATE SODIUM [Concomitant]
  6. NEXIUM [Concomitant]
  7. ACETYLSALICYLIC ACID SRT [Concomitant]
  8. ZOCOR [Concomitant]
  9. FOSAMAX [Concomitant]
  10. VITAMIN B12 [Concomitant]
  11. CALCIUM (CALCIUM) [Concomitant]
  12. FOLIC ACID [Concomitant]

REACTIONS (2)
  - CHEST PAIN [None]
  - SINUSITIS [None]
